FAERS Safety Report 6304465-X (Version None)
Quarter: 2009Q3

REPORT INFORMATION
  Report Type: 
  Country: None (occurrence: None)
  Receive Date: 20090806
  Receipt Date: 20090730
  Transmission Date: 20100115
  Serious: Yes (Hospitalization, Other)
  Sender: FDA-Public Use
  Company Number: TPA2009A02137

PATIENT
  Age: 66 Year
  Sex: Female
  Weight: 74.8435 kg

DRUGS (10)
  1. PREVACID [Suspect]
     Indication: DYSPEPSIA
     Dosage: 30 MG, 1 IN 1 D, PER ORAL ; 30 MG, TWICE DAILY, AS NEEDED, PER ORAL
     Route: 048
     Dates: start: 20090701, end: 20090701
  2. PREVACID [Suspect]
     Indication: HIATUS HERNIA
     Dosage: 30 MG, 1 IN 1 D, PER ORAL ; 30 MG, TWICE DAILY, AS NEEDED, PER ORAL
     Route: 048
     Dates: start: 20090701, end: 20090701
  3. PREVACID [Suspect]
     Indication: DYSPEPSIA
     Dosage: 30 MG, 1 IN 1 D, PER ORAL ; 30 MG, TWICE DAILY, AS NEEDED, PER ORAL
     Route: 048
     Dates: end: 20090701
  4. PREVACID [Suspect]
     Indication: HIATUS HERNIA
     Dosage: 30 MG, 1 IN 1 D, PER ORAL ; 30 MG, TWICE DAILY, AS NEEDED, PER ORAL
     Route: 048
     Dates: end: 20090701
  5. SYNTHROID [Concomitant]
  6. TOPROL-XL [Concomitant]
  7. VITAMIN B12 (RIBOFLAVIN) [Concomitant]
  8. VITAMIN E [Concomitant]
  9. COSAMINE (ALL OTHER THERAPEUTIC PRODUCTS) [Concomitant]
  10. ASPIRIN [Concomitant]

REACTIONS (7)
  - ABDOMINAL DISCOMFORT [None]
  - ARTHRITIS [None]
  - BRAIN NEOPLASM [None]
  - CONDITION AGGRAVATED [None]
  - DRUG INEFFECTIVE [None]
  - DYSPEPSIA [None]
  - THYROID NEOPLASM [None]
